FAERS Safety Report 13356972 (Version 1)
Quarter: 2017Q1

REPORT INFORMATION
  Report Type: Spontaneous
  Country: JP (occurrence: JP)
  Receive Date: 20170321
  Receipt Date: 20170321
  Transmission Date: 20170429
  Serious: Yes (Life-Threatening, Hospitalization, Other)
  Sender: FDA-Public Use
  Company Number: JP-ROCHE-1735057

PATIENT
  Age: 56 Year
  Sex: Female
  Weight: 46 kg

DRUGS (1)
  1. XELODA [Suspect]
     Active Substance: CAPECITABINE
     Indication: COLON CANCER
     Dosage: MOST RECENT DOSE: 04/MAR/2016
     Route: 048
     Dates: start: 20160302, end: 20160304

REACTIONS (9)
  - Palmar-plantar erythrodysaesthesia syndrome [Unknown]
  - Stomatitis [Recovered/Resolved]
  - Metastases to lung [Unknown]
  - Alopecia [Not Recovered/Not Resolved]
  - Febrile neutropenia [Recovered/Resolved]
  - Thrombocytopenia [Recovered/Resolved]
  - Nausea [Recovered/Resolved]
  - White blood cell count decreased [Unknown]
  - Decreased appetite [Unknown]

NARRATIVE: CASE EVENT DATE: 20160302
